FAERS Safety Report 8186734-4 (Version None)
Quarter: 2012Q1

REPORT INFORMATION
  Report Type: 
  Country: None (occurrence: None)
  Receive Date: 20120306
  Receipt Date: 20120301
  Transmission Date: 20120608
  Serious: Yes (Other)
  Sender: FDA-Public Use
  Company Number: US-BRISTOL-MYERS SQUIBB COMPANY-16396624

PATIENT
  Age: 39 Year
  Sex: Female
  Weight: 91 kg

DRUGS (6)
  1. ESTRADIOL [Concomitant]
  2. TRAMADOL HCL [Concomitant]
  3. CYMBALTA [Concomitant]
  4. ORENCIA [Suspect]
     Indication: RHEUMATOID ARTHRITIS
     Dosage: SQ 125 MG/ML,LAST INF ON 19DEC11
     Route: 042
     Dates: start: 20110811
  5. SIMVASTATIN [Concomitant]
  6. PRILOSEC [Concomitant]

REACTIONS (2)
  - PAIN [None]
  - DIVERTICULITIS [None]
